FAERS Safety Report 14458653 (Version 1)
Quarter: 2018Q1

REPORT INFORMATION
  Report Type: Spontaneous
  Country: US (occurrence: US)
  Receive Date: 20180130
  Receipt Date: 20180130
  Transmission Date: 20180509
  Serious: No
  Sender: FDA-Public Use
  Company Number: US-BAUSCH-BL-2017-021110

PATIENT
  Age: 74 Year
  Sex: Female
  Weight: 64.92 kg

DRUGS (2)
  1. ASPIRIN. [Concomitant]
     Active Substance: ASPIRIN
     Indication: PRODUCT USED FOR UNKNOWN INDICATION
  2. ZYLET [Suspect]
     Active Substance: LOTEPREDNOL ETABONATE\TOBRAMYCIN
     Indication: EYE INFLAMMATION
     Route: 047
     Dates: start: 20170706

REACTIONS (5)
  - Psychomotor hyperactivity [Unknown]
  - Feeling jittery [Unknown]
  - Myalgia [Unknown]
  - Muscle spasms [Unknown]
  - Insomnia [Recovered/Resolved]

NARRATIVE: CASE EVENT DATE: 20170706
